FAERS Safety Report 4333949-9 (Version None)
Quarter: 2004Q2

REPORT INFORMATION
  Report Type: 
  Country: None (occurrence: None)
  Receive Date: 20040406
  Receipt Date: 20040406
  Transmission Date: 20050107
  Serious: Yes (Death, Hospitalization)
  Sender: FDA-Public Use
  Company Number: None

PATIENT
  Age: 40 Year
  Sex: Male

DRUGS (2)
  1. TEMOZOLOMIDE DAYS 1-15 [Suspect]
     Indication: LUNG NEOPLASM MALIGNANT
     Dosage: 75 MG/M2 PO
     Route: 048
     Dates: start: 20040218, end: 20040303
  2. IRINOTECAN [Suspect]
     Indication: LUNG NEOPLASM MALIGNANT
     Dosage: 100 MG/M2 IV
     Route: 042
     Dates: start: 20040225, end: 20040304

REACTIONS (3)
  - DIARRHOEA [None]
  - DISEASE PROGRESSION [None]
  - DRUG TOXICITY [None]
